FAERS Safety Report 9365188 (Version 4)
Quarter: 2013Q3

REPORT INFORMATION
  Report Type: Spontaneous
  Country: US (occurrence: US)
  Receive Date: 20130624
  Receipt Date: 20130806
  Transmission Date: 20140515
  Serious: Yes (Hospitalization, Other)
  Sender: FDA-Public Use
  Company Number: US-BAXTER-2013BAX022791

PATIENT
  Age: 65 Year
  Sex: Male

DRUGS (2)
  1. DIANEAL LOW CALCIUM [Suspect]
     Indication: PERITONEAL DIALYSIS
     Route: 033
  2. DIANEAL LOW CALCIUM [Suspect]
     Indication: PERITONEAL DIALYSIS
     Route: 033

REACTIONS (9)
  - Calcinosis [Recovering/Resolving]
  - Diabetic ulcer [Recovering/Resolving]
  - Diabetic gangrene [Recovering/Resolving]
  - Pneumonia [Recovering/Resolving]
  - Gangrene [Not Recovered/Not Resolved]
  - Gastrointestinal infection [Not Recovered/Not Resolved]
  - Testicular swelling [Recovering/Resolving]
  - Blood calcium decreased [Not Recovered/Not Resolved]
  - Local swelling [Not Recovered/Not Resolved]
